FAERS Safety Report 19825329 (Version 3)
Quarter: 2023Q1

REPORT INFORMATION
  Report Type: Spontaneous
  Country: US (occurrence: US)
  Receive Date: 20210914
  Receipt Date: 20230113
  Transmission Date: 20230418
  Serious: Yes (Other)
  Sender: FDA-Public Use
  Company Number: US-SA-SAC20210908001023

PATIENT
  Sex: Female

DRUGS (2)
  1. KEVZARA [Suspect]
     Active Substance: SARILUMAB
     Indication: Rheumatoid arthritis
     Dosage: 200 MG, QOW
     Route: 058
     Dates: start: 202102
  2. METHOTREXATE [Suspect]
     Active Substance: METHOTREXATE

REACTIONS (8)
  - Rheumatoid arthritis [Unknown]
  - Joint swelling [Unknown]
  - Arthralgia [Unknown]
  - Pigmentation disorder [Unknown]
  - Contusion [Unknown]
  - Upper respiratory tract infection [Unknown]
  - Cough [Recovering/Resolving]
  - Rhinorrhoea [Unknown]
